FAERS Safety Report 8772364 (Version 1)
Quarter: 2012Q4

REPORT INFORMATION
  Report Type: 
  Country: US (occurrence: US)
  Receive Date: 20120906
  Receipt Date: 20120906
  Transmission Date: 20130627
  Serious: No
  Sender: FDA-Public Use
  Company Number: US-009507513-1208USA010817

PATIENT

DRUGS (1)
  1. ZIOPTAN [Suspect]
     Indication: GLAUCOMA
     Dosage: 1 DF, qpm
     Route: 061

REACTIONS (1)
  - Corneal erosion [Unknown]
